FAERS Safety Report 13177295 (Version 1)
Quarter: 2017Q1

REPORT INFORMATION
  Report Type: Report from Study
  Country: US (occurrence: US)
  Receive Date: 20170201
  Receipt Date: 20170201
  Transmission Date: 20170428
  Serious: No
  Sender: FDA-Public Use
  Company Number: US-EXELIXIS-CABO-14004298

PATIENT
  Age: 68 Year
  Sex: Female

DRUGS (11)
  1. COMETRIQ [Suspect]
     Active Substance: CABOZANTINIB S-MALATE
     Dosage: 80 MG, QD
     Route: 048
     Dates: start: 201602, end: 20160922
  2. COMETRIQ [Suspect]
     Active Substance: CABOZANTINIB S-MALATE
     Dosage: 80 MG, QD
     Route: 048
     Dates: start: 20160924, end: 201609
  3. COMETRIQ [Suspect]
     Active Substance: CABOZANTINIB S-MALATE
     Dosage: 80 MG QD 2 WKS ON, 1 WK OFF
     Route: 048
     Dates: start: 201609
  4. LEVOTHYROXINE. [Concomitant]
     Active Substance: LEVOTHYROXINE
  5. COMETRIQ [Suspect]
     Active Substance: CABOZANTINIB S-MALATE
     Indication: THYROID CANCER
     Dosage: 140 MG, QD
     Route: 048
     Dates: start: 20140513, end: 20140629
  6. COMETRIQ [Suspect]
     Active Substance: CABOZANTINIB S-MALATE
     Dosage: 80 MG, DAILY 2 WEEKS ON/1 WEEK OFF
     Route: 048
     Dates: start: 20141225
  7. COMETRIQ [Suspect]
     Active Substance: CABOZANTINIB S-MALATE
     Indication: GASTROINTESTINAL NEOPLASM
     Dosage: 100 MG, QD
     Route: 048
     Dates: start: 20140630
  8. NORVASC [Concomitant]
     Active Substance: AMLODIPINE BESYLATE
  9. COMETRIQ [Suspect]
     Active Substance: CABOZANTINIB S-MALATE
     Dosage: 80 MG, DAILY 2 WEEKS ON/1 WEEK OFF
     Route: 048
     Dates: start: 20150111
  10. VITAMIN B12 [Concomitant]
     Active Substance: CYANOCOBALAMIN
  11. COMETRIQ [Suspect]
     Active Substance: CABOZANTINIB S-MALATE
     Dosage: 80 MG, DAILY 2 WEEKS ON/1 WK OFF
     Route: 048
     Dates: start: 20141101, end: 20141222

REACTIONS (24)
  - Memory impairment [Unknown]
  - Dehydration [Unknown]
  - Heart rate increased [Not Recovered/Not Resolved]
  - Headache [Unknown]
  - Pruritus [Recovered/Resolved]
  - Gastrooesophageal reflux disease [Unknown]
  - Blood pressure fluctuation [Not Recovered/Not Resolved]
  - Dysgeusia [Unknown]
  - Decreased appetite [Unknown]
  - Flatulence [Unknown]
  - Seasonal allergy [Unknown]
  - Tongue disorder [Not Recovered/Not Resolved]
  - Blood pressure increased [Unknown]
  - Fatigue [Unknown]
  - Muscle spasms [Not Recovered/Not Resolved]
  - Gastrointestinal pain [Unknown]
  - Diarrhoea [Not Recovered/Not Resolved]
  - Dizziness [Not Recovered/Not Resolved]
  - Off label use [Unknown]
  - Hypersensitivity [Unknown]
  - Burning sensation [Unknown]
  - Dyspepsia [Unknown]
  - Agitation [Unknown]
  - Oral pain [Unknown]

NARRATIVE: CASE EVENT DATE: 2014
